FAERS Safety Report 10639254 (Version 2)
Quarter: 2015Q1

REPORT INFORMATION
  Report Type: Spontaneous
  Country: US (occurrence: US)
  Receive Date: 20141208
  Receipt Date: 20150122
  Transmission Date: 20150720
  Serious: Yes (Hospitalization, Other)
  Sender: FDA-Public Use
  Company Number: US-GILEAD-2014-0125903

PATIENT
  Age: 69 Year
  Sex: Male

DRUGS (2)
  1. OPSUMIT [Concomitant]
     Active Substance: MACITENTAN
  2. LETAIRIS [Suspect]
     Active Substance: AMBRISENTAN
     Indication: PULMONARY ARTERIAL HYPERTENSION
     Dosage: 5 MG, QD
     Route: 065
     Dates: start: 20141127

REACTIONS (7)
  - Weight increased [Unknown]
  - Dizziness [Unknown]
  - Fluid retention [Unknown]
  - Generalised oedema [Unknown]
  - Ear infection [Unknown]
  - Hypotension [Unknown]
  - Asthenia [Unknown]
